FAERS Safety Report 16892763 (Version 2)
Quarter: 2019Q4

REPORT INFORMATION
  Report Type: Spontaneous
  Country: US (occurrence: US)
  Receive Date: 20191007
  Receipt Date: 20191017
  Transmission Date: 20200122
  Serious: Yes (Other)
  Sender: FDA-Public Use
  Company Number: US-ALLERGAN-1939872US

PATIENT
  Sex: Female

DRUGS (2)
  1. NITROBID (GLYCERYL TRINITRATE) [Suspect]
     Active Substance: NITROGLYCERIN
     Indication: RASH ERYTHEMATOUS
     Dosage: THIN LAYER TO AFFECTED AREA
     Route: 061
     Dates: start: 20190721
  2. KYBELLA [Suspect]
     Active Substance: DEOXYCHOLIC ACID
     Indication: FAT TISSUE INCREASED
     Dosage: UNK, SINGLE
     Route: 065
     Dates: start: 2019, end: 2019

REACTIONS (9)
  - Pain [Recovered/Resolved]
  - Peripheral vascular disorder [Recovered/Resolved]
  - Headache [Recovered/Resolved]
  - Skin burning sensation [Recovered/Resolved]
  - Rash erythematous [Recovered/Resolved]
  - Off label use [Unknown]
  - Tissue injury [Recovered/Resolved]
  - Vascular injury [Unknown]
  - Rash papular [Recovered/Resolved]

NARRATIVE: CASE EVENT DATE: 2019
